FAERS Safety Report 18501458 (Version 2)
Quarter: 2021Q1

REPORT INFORMATION
  Report Type: Spontaneous
  Country: ES (occurrence: ES)
  Receive Date: 20201113
  Receipt Date: 20210317
  Transmission Date: 20210419
  Serious: Yes (Disabling, Other)
  Sender: FDA-Public Use
  Company Number: ES-PFIZER INC-2020442441

PATIENT
  Age: 63 Year
  Sex: Female

DRUGS (5)
  1. RITUXIMAB. [Suspect]
     Active Substance: RITUXIMAB
     Indication: WALDENSTROM^S MACROGLOBULINAEMIA
     Dosage: 375 MG/M2 CYCLIC ON DAYS 1?8?15?22 (1ST CYCLE)
     Route: 042
     Dates: start: 20160419, end: 20160512
  2. VELCADE [Suspect]
     Active Substance: BORTEZOMIB
     Dosage: 1.6 MG 1.6 MG/M2 CYCLIC ON DAYS 1?8?15
     Route: 042
     Dates: start: 20160719
  3. VELCADE [Suspect]
     Active Substance: BORTEZOMIB
     Dosage: 1.6 MG 1.6 MG/M2 CYCLIC ON DAYS 1?8?15
     Route: 042
     Dates: start: 20160419
  4. DEXAMETHASONE. [Suspect]
     Active Substance: DEXAMETHASONE
     Indication: WALDENSTROM^S MACROGLOBULINAEMIA
     Dosage: 40 MG, CYCLIC ON DAYS 1?8?15?22 FOR 3 CYCLES
     Route: 048
     Dates: start: 20160419, end: 20160809
  5. VELCADE [Suspect]
     Active Substance: BORTEZOMIB
     Indication: WALDENSTROM^S MACROGLOBULINAEMIA
     Dosage: 1.6 MG/M2 CYCLIC ON DAYS 1?8?15 (SECOND CYCLE)
     Route: 042
     Dates: start: 20160523

REACTIONS (6)
  - Off label use [Unknown]
  - Product use in unapproved indication [Unknown]
  - Condition aggravated [Unknown]
  - Diarrhoea [Recovered/Resolved with Sequelae]
  - Haemorrhagic diathesis [Recovered/Resolved]
  - Peripheral sensory neuropathy [Recovered/Resolved with Sequelae]

NARRATIVE: CASE EVENT DATE: 20160512
